FAERS Safety Report 5496398-6 (Version None)
Quarter: 2007Q4

REPORT INFORMATION
  Report Type: 
  Country: None (occurrence: None)
  Receive Date: 20071025
  Receipt Date: 20070330
  Transmission Date: 20080405
  Serious: No
  Sender: FDA-Public Use
  Company Number: A0645865A

PATIENT

DRUGS (2)
  1. ADVAIR DISKUS 100/50 [Suspect]
     Indication: DRUG USE FOR UNKNOWN INDICATION
     Route: 045
  2. ANTIBIOTIC [Concomitant]

REACTIONS (2)
  - FUNGAL INFECTION [None]
  - SPUTUM CULTURE POSITIVE [None]
